FAERS Safety Report 5266135-9 (Version None)
Quarter: 2007Q1

REPORT INFORMATION
  Report Type: 
  Country: None (occurrence: None)
  Receive Date: 20070315
  Receipt Date: 20070228
  Transmission Date: 20070707
  Serious: Yes (Hospitalization)
  Sender: FDA-Public Use
  Company Number: US-AMGEN-STX210203

PATIENT
  Sex: Male

DRUGS (5)
  1. ENBREL [Suspect]
     Indication: PSORIASIS
     Route: 058
     Dates: start: 20061101, end: 20070130
  2. ENBREL [Suspect]
     Indication: PSORIATIC ARTHROPATHY
  3. METHOTREXATE [Concomitant]
     Route: 048
     Dates: start: 20060201, end: 20070130
  4. FUROSEMIDE [Concomitant]
     Dates: start: 20020101
  5. ASPIRIN [Concomitant]
     Dates: end: 20070101

REACTIONS (4)
  - ARTHRALGIA [None]
  - IDIOPATHIC THROMBOCYTOPENIC PURPURA [None]
  - OEDEMA PERIPHERAL [None]
  - RASH [None]
